FAERS Safety Report 7686837-4 (Version None)
Quarter: 2011Q3

REPORT INFORMATION
  Report Type: 
  Country: None (occurrence: None)
  Receive Date: 20110816
  Receipt Date: 20110801
  Transmission Date: 20111222
  Serious: Yes (Hospitalization)
  Sender: FDA-Public Use
  Company Number: SG-WATSON-2011-12739

PATIENT
  Age: 12 Year
  Sex: Female

DRUGS (2)
  1. PREDNISOLONE [Suspect]
     Indication: ERYTHEMA MULTIFORME
     Dosage: TAPERING DOSE OVER 1 WEEK
     Route: 065
  2. HYDROCORTISONE [Suspect]
     Indication: ERYTHEMA MULTIFORME
     Dosage: UNK

REACTIONS (4)
  - STEVENS-JOHNSON SYNDROME [None]
  - CONDITION AGGRAVATED [None]
  - WITHDRAWAL SYNDROME [None]
  - SYSTEMIC LUPUS ERYTHEMATOSUS [None]
